FAERS Safety Report 21252690 (Version 12)
Quarter: 2023Q4

REPORT INFORMATION
  Report Type: Report from Study
  Country: US (occurrence: None)
  Receive Date: 20220825
  Receipt Date: 20231104
  Transmission Date: 20240110
  Serious: Yes (Hospitalization)
  Sender: FDA-Public Use
  Company Number: US-ROCHE-3099972

PATIENT
  Age: 64 Year
  Sex: Male

DRUGS (34)
  1. FARICIMAB [Suspect]
     Active Substance: FARICIMAB
     Indication: Diabetic retinal oedema
     Dosage: MOST RECENT DOSE (6 MG) OF STUDY DRUG PRIOR TO SAE/AE: 10/FEB/2022 3:15 PM
     Route: 050
     Dates: start: 20210527
  2. FARICIMAB [Suspect]
     Active Substance: FARICIMAB
     Dosage: DOSE OF LAST STUDY DRUG ADMINISTERED PRIOR TO AE/SAE IS 6 MG?ON 10/FEB/2022, DATE OF MOST RECENT DOS
     Route: 050
     Dates: start: 20211111
  3. FARICIMAB [Suspect]
     Active Substance: FARICIMAB
     Dosage: ON 16/MAY/2022, START DATE OF MOST RECENT DOSE OF STUDY DRUG PRIOR TO AE/SAE?DOSE LAST STUDY DRUG AD
     Route: 050
  4. BEVACIZUMAB [Suspect]
     Active Substance: BEVACIZUMAB
     Indication: Diabetic retinal oedema
     Dosage: MOST RECENT DOSE OF STUDY DRUG (6 MG) PRIOR TO SAE/AE: 10/FEB/2022 3:20 PM WHICH ENDED ON SAME DAY.
     Route: 050
     Dates: start: 20220210
  5. RANIBIZUMAB [Concomitant]
     Active Substance: RANIBIZUMAB
     Indication: Diabetic retinal oedema
     Dosage: ON 10/FEB/2022 AT 3:20 PM, HE RECEIVED MOST RECENT DOSE OF RANIBIZUMAB FELLOW EYE ANTI- VEGF PRIOE T
     Route: 050
     Dates: start: 20210819
  6. METOPROLOL SUCCINATE [Concomitant]
     Active Substance: METOPROLOL SUCCINATE
     Indication: Hypertension
     Route: 048
     Dates: start: 201812, end: 20220516
  7. ASPIRIN [Concomitant]
     Active Substance: ASPIRIN
     Route: 048
     Dates: start: 2018
  8. HUMALOG [Concomitant]
     Active Substance: INSULIN LISPRO
     Indication: Type 2 diabetes mellitus
     Route: 058
     Dates: start: 2018, end: 20220516
  9. HUMALOG [Concomitant]
     Active Substance: INSULIN LISPRO
     Route: 058
     Dates: start: 20220516
  10. GLIMEPIRIDE [Concomitant]
     Active Substance: GLIMEPIRIDE
     Indication: Type 2 diabetes mellitus
     Route: 048
     Dates: start: 2016, end: 20220516
  11. SODIUM BICARBONATE [Concomitant]
     Active Substance: SODIUM BICARBONATE
     Indication: Nephropathy
     Route: 048
     Dates: start: 201909
  12. FUROSEMIDE [Concomitant]
     Active Substance: FUROSEMIDE
     Indication: Nephropathy
     Route: 048
     Dates: start: 20190930, end: 20220301
  13. NIFEDIPINE [Concomitant]
     Active Substance: NIFEDIPINE
     Indication: Nephropathy
     Route: 048
     Dates: start: 20190930, end: 20220301
  14. VITAMIN D3 [Concomitant]
     Active Substance: CHOLECALCIFEROL
     Route: 048
     Dates: start: 201909
  15. DELTA 8 CBD [Concomitant]
     Route: 048
     Dates: start: 20210910
  16. ATORVASTATIN [Concomitant]
     Active Substance: ATORVASTATIN
     Indication: Hypercholesterolaemia
     Route: 048
     Dates: start: 20201028
  17. RANIBIZUMAB [Concomitant]
     Active Substance: RANIBIZUMAB
     Route: 065
  18. PLAVIX [Concomitant]
     Active Substance: CLOPIDOGREL BISULFATE
     Indication: Carotid artery stenosis
     Route: 048
     Dates: start: 20220517
  19. PROTONIX [Concomitant]
     Active Substance: PANTOPRAZOLE SODIUM
     Indication: Dyspepsia
     Route: 048
     Dates: start: 20220517
  20. ADMELOG [Concomitant]
     Active Substance: INSULIN LISPRO
     Indication: Type 2 diabetes mellitus
     Route: 058
     Dates: start: 20220516
  21. AMLODIPINE [Concomitant]
     Active Substance: AMLODIPINE BESYLATE
     Indication: Hypertension
     Route: 048
     Dates: start: 2018
  22. HYDRALAZINE [Concomitant]
     Active Substance: HYDRALAZINE HYDROCHLORIDE
     Indication: Hypertension
     Route: 048
     Dates: start: 20220504
  23. PENICILLIN G POTASSIUM [Concomitant]
     Active Substance: PENICILLIN G POTASSIUM
     Indication: Infection
     Route: 065
     Dates: start: 20220504
  24. TACROLIMUS [Concomitant]
     Active Substance: TACROLIMUS
     Indication: Dermatitis atopic
     Route: 048
     Dates: start: 20220504
  25. MYCOPHENOLIC ACID [Concomitant]
     Active Substance: MYCOPHENOLIC ACID
     Indication: Nephropathy
     Route: 048
     Dates: start: 20220504
  26. PREDNISONE [Concomitant]
     Active Substance: PREDNISONE
     Indication: Inflammation
     Route: 048
     Dates: start: 20220504
  27. VALGANCICLOVIR [Concomitant]
     Active Substance: VALGANCICLOVIR
     Indication: Renal transplant
     Route: 048
     Dates: start: 20220504
  28. ACETAMINOPHEN [Concomitant]
     Active Substance: ACETAMINOPHEN
     Route: 048
     Dates: start: 20220504
  29. FAMOTIDINE [Concomitant]
     Active Substance: FAMOTIDINE
     Indication: Dyspepsia
     Route: 048
     Dates: start: 20220504
  30. FAMOTIDINE [Concomitant]
     Active Substance: FAMOTIDINE
     Indication: Dyspepsia
  31. CYANOCOBALAMIN\FOLIC ACID\PYRIDOXINE HYDROCHLORIDE [Concomitant]
     Active Substance: CYANOCOBALAMIN\FOLIC ACID\PYRIDOXINE HYDROCHLORIDE
     Indication: Hypovitaminosis
     Route: 048
     Dates: start: 20220301
  32. SODIUM ZIRCONIUM CYCLOSILICATE [Concomitant]
     Active Substance: SODIUM ZIRCONIUM CYCLOSILICATE
     Indication: Hyperkalaemia
     Route: 048
     Dates: start: 20220504, end: 20220516
  33. LEVOTHYROXINE [Concomitant]
     Active Substance: LEVOTHYROXINE
     Indication: Hypothyroidism
     Route: 048
     Dates: start: 20220110
  34. CLOPIDOGREL [Concomitant]
     Active Substance: CLOPIDOGREL BISULFATE
     Indication: Coronary artery disease
     Route: 048
     Dates: start: 20201028, end: 20211111

REACTIONS (6)
  - Retinal artery occlusion [Not Recovered/Not Resolved]
  - Endocarditis bacterial [Recovering/Resolving]
  - Ischaemic stroke [Recovering/Resolving]
  - Carotid artery stenosis [Recovering/Resolving]
  - Anaemia [Not Recovered/Not Resolved]
  - Nephropathy [Recovering/Resolving]

NARRATIVE: CASE EVENT DATE: 20210909
